FAERS Safety Report 14833152 (Version 1)
Quarter: 2018Q2

REPORT INFORMATION
  Report Type: Spontaneous
  Country: US (occurrence: US)
  Receive Date: 20180414
  Receipt Date: 20180414
  Transmission Date: 20180711
  Serious: No
  Sender: FDA-Public Use
  Company Number: None

PATIENT
  Age: 54 Year
  Sex: Female
  Weight: 63.9 kg

DRUGS (2)
  1. CIPROFLOXACIN 500 MGS [Suspect]
     Active Substance: CIPROFLOXACIN
  2. LEVOFLOXACIN 500 MG TABS ZYD [Suspect]
     Active Substance: LEVOFLOXACIN

REACTIONS (3)
  - Paraesthesia [None]
  - Headache [None]
  - Erythema [None]

NARRATIVE: CASE EVENT DATE: 20180413
